FAERS Safety Report 9173932 (Version 1)
Quarter: 2013Q1

REPORT INFORMATION
  Report Type: Spontaneous
  Country: US (occurrence: US)
  Receive Date: 20130320
  Receipt Date: 20130320
  Transmission Date: 20140127
  Serious: No
  Sender: FDA-Public Use
  Company Number: US-GALDERMA-US12415902

PATIENT
  Age: 57 None
  Sex: Female
  Weight: 82 kg

DRUGS (12)
  1. VECTICAL [Suspect]
     Indication: PSORIASIS
     Route: 061
     Dates: start: 2012, end: 20121207
  2. CLOBETASOL PROPIONATE [Concomitant]
     Indication: PSORIASIS
     Route: 061
  3. HCTZ (HYDROCHLOROTHIAZIDE) [Concomitant]
     Indication: HYPERTENSION
     Dosage: 12.5/25 MG
     Route: 048
     Dates: start: 2009
  4. AMBIEN (ZOLPIDEM) [Concomitant]
     Route: 048
  5. BIOFLAVENOIDS [Concomitant]
     Indication: INFLAMMATION
     Route: 048
     Dates: start: 201209
  6. ASTAXANTHIN [Concomitant]
     Indication: SUPPLEMENTATION THERAPY
     Route: 048
     Dates: start: 201206
  7. VITAMIN D [Concomitant]
     Route: 048
  8. CALCIUM [Concomitant]
     Route: 048
     Dates: end: 20121210
  9. CALCIUM [Concomitant]
     Route: 048
  10. CO Q10 [Concomitant]
  11. VITAMIN C [Concomitant]
  12. MAGNESIUM [Concomitant]

REACTIONS (8)
  - Arrhythmia [Recovering/Resolving]
  - Heart rate irregular [Recovering/Resolving]
  - Blood pressure increased [Recovering/Resolving]
  - Bradycardia [Recovering/Resolving]
  - Palpitations [Recovering/Resolving]
  - Feeling abnormal [Recovering/Resolving]
  - Sleep disorder due to general medical condition, insomnia type [Recovered/Resolved]
  - Inappropriate schedule of drug administration [None]
